FAERS Safety Report 4290054-8 (Version None)
Quarter: 2004Q1

REPORT INFORMATION
  Report Type: 
  Country: None (occurrence: None)
  Receive Date: 20040206
  Receipt Date: 20040130
  Transmission Date: 20041129
  Serious: Yes (Other)
  Sender: FDA-Public Use
  Company Number: 2004-01-2047

PATIENT
  Age: 38 Year
  Sex: Male

DRUGS (2)
  1. TEMODAL [Suspect]
     Indication: GLIOMA
     Dosage: ORAL
     Route: 048
     Dates: end: 20031203
  2. DECADRON [Concomitant]

REACTIONS (2)
  - DISEASE RECURRENCE [None]
  - TUMOUR HAEMORRHAGE [None]
